FAERS Safety Report 16420189 (Version 2)
Quarter: 2019Q3

REPORT INFORMATION
  Report Type: Spontaneous
  Country: US (occurrence: US)
  Receive Date: 20190612
  Receipt Date: 20190708
  Transmission Date: 20191004
  Serious: No
  Sender: FDA-Public Use
  Company Number: US-009507513-1906USA001668

PATIENT
  Age: 50 Year
  Sex: Female

DRUGS (11)
  1. JANUVIA [Suspect]
     Active Substance: SITAGLIPTIN PHOSPHATE
     Indication: TYPE 2 DIABETES MELLITUS
     Dosage: ONE TABLET IN THE MORNING BEFORE BREAKFAST
     Route: 048
     Dates: start: 201411, end: 201904
  2. MACRODANTIN [Concomitant]
     Active Substance: NITROFURANTOIN
  3. TYLENOL WITH CODEINE #3 (ACETAMINOPHEN (+) CODEINE PHOSPHATE) [Concomitant]
  4. NOVOLOG [Concomitant]
     Active Substance: INSULIN ASPART
  5. BASAGLAR [Concomitant]
     Active Substance: INSULIN GLARGINE
  6. MAGNESIUM (UNSPECIFIED) [Concomitant]
     Active Substance: MAGNESIUM
  7. LYRICA [Concomitant]
     Active Substance: PREGABALIN
  8. OXYBUTIN [Concomitant]
     Active Substance: OXYBUTYNIN
  9. TAMOXIFEN [Concomitant]
     Active Substance: TAMOXIFEN
  10. OMEPRAZOLE. [Concomitant]
     Active Substance: OMEPRAZOLE
  11. MELOXICAM. [Concomitant]
     Active Substance: MELOXICAM

REACTIONS (3)
  - Inability to afford medication [Unknown]
  - Blood glucose increased [Not Recovered/Not Resolved]
  - Product dose omission [Unknown]

NARRATIVE: CASE EVENT DATE: 201904
